FAERS Safety Report 6001897-4 (Version None)
Quarter: 2008Q4

REPORT INFORMATION
  Report Type: 
  Country: None (occurrence: None)
  Receive Date: 20081212
  Receipt Date: 20081201
  Transmission Date: 20090506
  Serious: Yes (Hospitalization)
  Sender: FDA-Public Use
  Company Number: 2008AL009964

PATIENT
  Age: 74 Year
  Sex: Male
  Weight: 86.1834 kg

DRUGS (13)
  1. DIGOXIN [Suspect]
     Indication: PALPITATIONS
     Dosage: 0.125, DAILY, PO
     Route: 048
     Dates: start: 20080318, end: 20080327
  2. OXYCODONE HCL [Concomitant]
  3. LISINOPRIL [Concomitant]
  4. PLAVIX [Concomitant]
  5. SIMVASTATIN [Concomitant]
  6. AMBIENT [Concomitant]
  7. NORCO [Concomitant]
  8. METHADONE HCL [Concomitant]
  9. ASPIRIN [Concomitant]
  10. CYMBALTA [Concomitant]
  11. METOPROLOL [Concomitant]
  12. AMIODARONE HCL [Concomitant]
  13. NEXIUM [Concomitant]

REACTIONS (17)
  - ABDOMINAL PAIN UPPER [None]
  - ARTERIOSCLEROSIS [None]
  - ASTHENIA [None]
  - CHEST PAIN [None]
  - CONTUSION [None]
  - CORONARY ARTERY DISEASE [None]
  - DIZZINESS [None]
  - FALL [None]
  - GAIT DISTURBANCE [None]
  - HEADACHE [None]
  - INFECTION [None]
  - NEPHROLITHIASIS [None]
  - PAIN [None]
  - SEPTIC SHOCK [None]
  - STAPHYLOCOCCAL SEPSIS [None]
  - TREMOR [None]
  - UROSEPSIS [None]
